FAERS Safety Report 6517534-6 (Version None)
Quarter: 2009Q4

REPORT INFORMATION
  Report Type: 
  Country: None (occurrence: None)
  Receive Date: 20091224
  Receipt Date: 20091216
  Transmission Date: 20100525
  Serious: Yes (Hospitalization)
  Sender: FDA-Public Use
  Company Number: JP-ROCHE-656490

PATIENT
  Age: 76 Year
  Sex: Male

DRUGS (15)
  1. TAMIFLU [Suspect]
     Indication: INFLUENZA
     Route: 048
     Dates: start: 20090823, end: 20090826
  2. ASPIRIN [Concomitant]
     Dosage: REPORTED DRUG: BAYASPIRIN(ASPIRIN)
     Route: 048
  3. RENIVEZE [Concomitant]
     Dosage: REPORTED DRUG: RENIVEZE(ENALAPRIL MALEATE)
     Route: 048
  4. ARTIST [Concomitant]
     Dosage: REPORTED DRUG: ARTIST(CARVEDILOL)
     Route: 048
  5. AMLODIPINE [Concomitant]
     Dosage: REPORTED DRUG: AMLODIPINE OD(AMLODIPINE BESILATE)
     Route: 048
  6. ZYLORIC [Concomitant]
     Dosage: REPORTED DRUG: ZYLORIC(ALLOPURINOL)
     Route: 048
  7. MICARDIS [Concomitant]
     Dosage: REPORTED DRUG: MICARDIS(TELMISARTAN)
     Route: 048
  8. ARGAMATE [Concomitant]
     Dosage: REPORTED DRUG: ARGAMATE(CALCIUM POLYSTYRENE SULFONATE)
     Route: 048
  9. OMEPRAL [Concomitant]
     Dosage: REPORTED DRUG: OMEPRAL(OMEPRAZOLE)
     Route: 048
  10. PANARDINE [Concomitant]
     Dosage: DRUG REPORTED: PANAPIDIN(TICLOPIDINE HYDROCHLORIDE)
     Route: 048
  11. ALLELOCK [Concomitant]
     Dosage: REPORTED DRUG: ALLELOCK(OLOPATADINE HYDROCHLORIDE)
     Route: 048
  12. D-SORBITOL [Concomitant]
     Dosage: FORM: FINE GRANULES, REPORTED DRUG: D-SORBITOL(D-SORBITOL)
     Route: 048
  13. PURSENNID [Concomitant]
     Dosage: REPORTED DRUG: PURSENNID(SENNOSIDE)
     Route: 048
  14. BASEN [Concomitant]
     Dosage: REPORTED DRUG: BASEN OD(VOGLIBOSE)
     Route: 048
  15. LIPITOR [Concomitant]
     Dosage: REPORTED DRUG: LIPITOR(ATORVASTATIN CALCIUM)
     Route: 048

REACTIONS (1)
  - PLATELET COUNT DECREASED [None]
